FAERS Safety Report 5704175-3 (Version None)
Quarter: 2008Q2

REPORT INFORMATION
  Report Type: 
  Country: None (occurrence: None)
  Receive Date: 20080414
  Receipt Date: 20080404
  Transmission Date: 20081010
  Serious: Yes (Other)
  Sender: FDA-Public Use
  Company Number: FR-JNJFOC-20080305081

PATIENT
  Age: 70 Year
  Sex: Male
  Weight: 68 kg

DRUGS (8)
  1. REMICADE [Suspect]
     Route: 042
  2. REMICADE [Suspect]
     Indication: RHEUMATOID ARTHRITIS
     Route: 042
  3. NOVATREX [Concomitant]
     Indication: RHEUMATOID ARTHRITIS
  4. HYDROCORTISONE [Concomitant]
     Indication: RHEUMATOID ARTHRITIS
  5. ACTONEL [Concomitant]
     Indication: RHEUMATOID ARTHRITIS
  6. CALTRATE [Concomitant]
     Indication: RHEUMATOID ARTHRITIS
  7. TENORMIN [Concomitant]
     Indication: RHEUMATOID ARTHRITIS
  8. TENORMIN [Concomitant]
     Indication: HYPERTENSION

REACTIONS (5)
  - DYSPNOEA EXERTIONAL [None]
  - HYPERTENSION [None]
  - HYPERTROPHIC CARDIOMYOPATHY [None]
  - INFUSION RELATED REACTION [None]
  - INTERMITTENT CLAUDICATION [None]
